FAERS Safety Report 20106556 (Version 1)
Quarter: 2021Q4

REPORT INFORMATION
  Report Type: Other
  Country: US (occurrence: US)
  Receive Date: 20211124
  Receipt Date: 20211124
  Transmission Date: 20220304
  Serious: No
  Sender: FDA-Public Use
  Company Number: US-NEUROCRINE BIOSCIENCES INC.-2021NBI06656

PATIENT

DRUGS (2)
  1. INGREZZA [Suspect]
     Active Substance: VALBENAZINE
     Indication: Tardive dyskinesia
     Dosage: 40 MILLIGRAM, QD
     Route: 048
     Dates: start: 20211019, end: 20211111
  2. PRIMIDONE [Suspect]
     Active Substance: PRIMIDONE
     Dosage: UNK

REACTIONS (2)
  - Anxiety [Unknown]
  - Drug interaction [Unknown]
